FAERS Safety Report 9761280 (Version 1)
Quarter: 2013Q4

REPORT INFORMATION
  Report Type: Spontaneous
  Country: US (occurrence: US)
  Receive Date: 20131216
  Receipt Date: 20131216
  Transmission Date: 20140711
  Serious: No
  Sender: FDA-Public Use
  Company Number: US-FOUGERA-2013FO000314

PATIENT
  Sex: 0

DRUGS (1)
  1. SOLARAZE [Suspect]
     Indication: PRODUCT USED FOR UNKNOWN INDICATION

REACTIONS (3)
  - Application site haemorrhage [Unknown]
  - Application site erythema [Unknown]
  - Application site vesicles [Unknown]
